FAERS Safety Report 9445976 (Version 3)
Quarter: 2014Q2

REPORT INFORMATION
  Report Type: Spontaneous
  Country: US (occurrence: US)
  Receive Date: 20130807
  Receipt Date: 20140408
  Transmission Date: 20141212
  Serious: Yes (Other)
  Sender: FDA-Public Use
  Company Number: US-PFIZER INC-2013230152

PATIENT
  Age: 59 Year
  Sex: Female
  Weight: 74.8 kg

DRUGS (13)
  1. XELJANZ [Suspect]
     Indication: RHEUMATOID ARTHRITIS
     Dosage: 5 MG, 2X/DAY
     Route: 048
     Dates: end: 201307
  2. METHADONE [Concomitant]
     Dosage: 10 MG, UNK
  3. LEVOTHYROXINE [Concomitant]
     Dosage: 25 UG, UNK
  4. ZOMIG [Concomitant]
     Dosage: 2.5 MG, UNK
  5. ADVAIR DISKUS [Concomitant]
     Dosage: FLUTICASONE PROPIONATE100/ SALMETEROL XINAFOATE50
  6. ADVIL [Concomitant]
     Dosage: 200 MG, UNK
  7. KLONOPIN [Concomitant]
     Dosage: 1 MG
  8. KLONOPIN [Concomitant]
     Dosage: 0.5 MG, UNK
  9. GABAPENTIN [Concomitant]
     Dosage: 100 MG, UNK
  10. VENLAFAXINE [Concomitant]
     Dosage: 37.5 MG, UNK
  11. PERCOCET [Concomitant]
     Dosage: OXYCODONE HYDROCHLORIDE 5 MG, PARACETAMOL 325 MG
  12. LOSARTAN POTASSIUM W/HYDROCHLOROTHIAZIDE [Concomitant]
     Dosage: LOSARTAN POTASSIUM 100/HYDROCHLOROTHIAZIDE 12.5
  13. PREDNISONE [Concomitant]
     Dosage: 5 MG, UNK

REACTIONS (10)
  - Tendon rupture [Unknown]
  - Drug ineffective [Unknown]
  - Migraine [Unknown]
  - Fatigue [Unknown]
  - Joint swelling [Unknown]
  - Musculoskeletal stiffness [Unknown]
  - Pain [Unknown]
  - Decreased appetite [Unknown]
  - Hiatus hernia [Unknown]
  - Pancreatic disorder [Unknown]
